FAERS Safety Report 14788250 (Version 1)
Quarter: 2018Q2

REPORT INFORMATION
  Report Type: Spontaneous
  Country: SE (occurrence: SE)
  Receive Date: 20180423
  Receipt Date: 20180423
  Transmission Date: 20180711
  Serious: Yes (Other)
  Sender: FDA-Public Use
  Company Number: SE-009507513-1804SWE007069

PATIENT
  Age: 51 Year
  Sex: Male

DRUGS (5)
  1. BEHEPAN [Concomitant]
     Active Substance: HYDROXOCOBALAMIN
  2. ZEPATIER [Suspect]
     Active Substance: ELBASVIR\GRAZOPREVIR
     Indication: HEPATITIS C
     Dosage: 1 DF (50/100 MG) 1X1
     Route: 048
     Dates: start: 20170307, end: 20170607
  3. OXASCAND [Concomitant]
     Active Substance: OXAZEPAM
  4. METOPROLOL. [Concomitant]
     Active Substance: METOPROLOL
  5. ZOPICLONE [Concomitant]
     Active Substance: ZOPICLONE
     Dosage: AS NECESSARY

REACTIONS (1)
  - Anxiety disorder [Not Recovered/Not Resolved]

NARRATIVE: CASE EVENT DATE: 20170313
